FAERS Safety Report 10759182 (Version 1)
Quarter: 2015Q1

REPORT INFORMATION
  Report Type: Spontaneous
  Country: US (occurrence: None)
  Receive Date: 20150202
  Receipt Date: 20150202
  Transmission Date: 20150721
  Serious: Yes (Disabling)
  Sender: FDA-Public Use
  Company Number: None

PATIENT
  Age: 35 Year
  Sex: Female
  Weight: 78.47 kg

DRUGS (1)
  1. LINZESS [Suspect]
     Active Substance: LINACLOTIDE
     Indication: IRRITABLE BOWEL SYNDROME
     Dosage: 1 PILL ONCE DAILY
     Route: 048
     Dates: start: 20140730, end: 20150127

REACTIONS (2)
  - Obesity [None]
  - Weight increased [None]

NARRATIVE: CASE EVENT DATE: 20150127
